FAERS Safety Report 8173045-6 (Version None)
Quarter: 2012Q1

REPORT INFORMATION
  Report Type: 
  Country: None (occurrence: None)
  Receive Date: 20120223
  Receipt Date: 20120208
  Transmission Date: 20120608
  Serious: Yes (Disabling, Other)
  Sender: FDA-Public Use
  Company Number: 2010AL001455

PATIENT
  Age: 22 Year
  Sex: Female
  Weight: 49.4421 kg

DRUGS (28)
  1. ARTANE [Concomitant]
  2. LIORESAL [Concomitant]
  3. RELAFEN [Concomitant]
  4. FIORICET [Concomitant]
  5. ISTARIL [Concomitant]
  6. MYSOLINE [Concomitant]
  7. RESERPINE [Concomitant]
  8. SINEMET [Concomitant]
  9. CAPERGOT [Concomitant]
  10. INDERAL [Concomitant]
  11. PAMELOR [Concomitant]
  12. PERTACTIN [Concomitant]
  13. BOTOX [Concomitant]
  14. ISOPTIN [Concomitant]
  15. NORFLEX [Concomitant]
  16. FLEXERIL [Concomitant]
  17. PEPCID [Concomitant]
  18. ORUDIS [Concomitant]
  19. PROZAC [Concomitant]
  20. TEGRETOL [Concomitant]
  21. METOCLOPRAMIDE HYDROCHLORIDE [Suspect]
     Indication: MIGRAINE
     Dosage: PO
     Route: 048
     Dates: start: 19901024, end: 19901130
  22. METOCLOPRAMIDE HYDROCHLORIDE [Suspect]
     Indication: HEADACHE
     Dosage: PO
     Route: 048
     Dates: start: 19901024, end: 19901130
  23. METOCLOPRAMIDE HYDROCHLORIDE [Suspect]
     Indication: NAUSEA
     Dosage: PO
     Route: 048
     Dates: start: 19901024, end: 19901130
  24. HALDOL [Concomitant]
  25. MIDRIN [Concomitant]
  26. SELDANE [Concomitant]
  27. TETRABENAZINE [Concomitant]
  28. ACETAMINOPHEN [Concomitant]

REACTIONS (37)
  - EXTRAPYRAMIDAL DISORDER [None]
  - EXCESSIVE EYE BLINKING [None]
  - DEPRESSION [None]
  - PAIN [None]
  - EMOTIONAL DISTRESS [None]
  - BRUXISM [None]
  - VERTIGO [None]
  - TARDIVE DYSKINESIA [None]
  - DEFORMITY [None]
  - HEADACHE [None]
  - VOMITING [None]
  - TINNITUS [None]
  - ACTIVITIES OF DAILY LIVING IMPAIRED [None]
  - MENTAL DISORDER [None]
  - ANXIETY [None]
  - SENSORY DISTURBANCE [None]
  - SOMNOLENCE [None]
  - DYSKINESIA [None]
  - NERVOUS SYSTEM DISORDER [None]
  - TREMOR [None]
  - AKATHISIA [None]
  - TEMPOROMANDIBULAR JOINT SYNDROME [None]
  - ABDOMINAL DISCOMFORT [None]
  - FACIAL PAIN [None]
  - MYALGIA [None]
  - MULTIPLE INJURIES [None]
  - ECONOMIC PROBLEM [None]
  - ASTHENIA [None]
  - MIGRAINE [None]
  - PARAESTHESIA [None]
  - MUSCLE SPASMS [None]
  - DYSTONIA [None]
  - NEURALGIA [None]
  - ABDOMINAL DISTENSION [None]
  - NAUSEA [None]
  - GAIT DISTURBANCE [None]
  - STEREOTYPY [None]
